FAERS Safety Report 18762456 (Version 3)
Quarter: 2021Q1

REPORT INFORMATION
  Report Type: Spontaneous
  Country: GB (occurrence: GB)
  Receive Date: 20210120
  Receipt Date: 20210317
  Transmission Date: 20210419
  Serious: Yes (Other)
  Sender: FDA-Public Use
  Company Number: NVSC2020GB332196

PATIENT
  Age: 74 Year
  Sex: Male

DRUGS (7)
  1. ABIRATERONE ACETATE. [Suspect]
     Active Substance: ABIRATERONE ACETATE
     Dosage: 1000 MG,QD
     Route: 048
     Dates: end: 20210202
  2. CYPROTERONE [Concomitant]
     Active Substance: CYPROTERONE
     Indication: HOT FLUSH
     Dosage: 50 MG,QD
     Route: 048
     Dates: start: 202011
  3. ABIRATERONE ACETATE. [Suspect]
     Active Substance: ABIRATERONE ACETATE
     Indication: PROSTATE CANCER
     Dosage: 1000 MG,QD
     Route: 048
     Dates: start: 20200601, end: 20210105
  4. ABIRATERONE ACETATE. [Suspect]
     Active Substance: ABIRATERONE ACETATE
     Dosage: 1000 MG,QD
     Route: 048
     Dates: start: 20210204
  5. PREDNISOLONE. [Suspect]
     Active Substance: PREDNISOLONE
     Indication: PROSTATE CANCER
     Dosage: 5 MG,QD
     Route: 048
     Dates: start: 20200601, end: 20210105
  6. ZOLADEX [Concomitant]
     Active Substance: GOSERELIN ACETATE
     Indication: HORMONE THERAPY
     Dosage: 11.25 MG
     Route: 058
     Dates: start: 20060101
  7. LUPRON DEPOT [Concomitant]
     Active Substance: LEUPROLIDE ACETATE
     Indication: HORMONE THERAPY
     Dosage: 11.25 MG,12 WEEKS
     Route: 058
     Dates: start: 202011

REACTIONS (4)
  - Palpitations [Recovered/Resolved]
  - Blood bilirubin increased [Not Recovered/Not Resolved]
  - Chest pain [Recovered/Resolved]
  - Dyspnoea exertional [Recovered/Resolved]

NARRATIVE: CASE EVENT DATE: 202012
